FAERS Safety Report 24001740 (Version 1)
Quarter: 2024Q2

REPORT INFORMATION
  Report Type: Spontaneous
  Country: US (occurrence: US)
  Receive Date: 20240622
  Receipt Date: 20240622
  Transmission Date: 20240716
  Serious: No
  Sender: FDA-Public Use
  Company Number: US-ABBVIE-5809389

PATIENT
  Sex: Female

DRUGS (1)
  1. LILETTA [Suspect]
     Active Substance: LEVONORGESTREL
     Indication: Product used for unknown indication
     Dosage: SINGLE INSERTION DEVICE
     Route: 015
     Dates: start: 20240605

REACTIONS (2)
  - Pain [Unknown]
  - Uterine cervix stenosis [Unknown]

NARRATIVE: CASE EVENT DATE: 20240101
